FAERS Safety Report 18014675 (Version 1)
Quarter: 2020Q3

REPORT INFORMATION
  Report Type: Spontaneous
  Country: US (occurrence: US)
  Receive Date: 20200713
  Receipt Date: 20200713
  Transmission Date: 20201103
  Serious: Yes (Death)
  Sender: FDA-Public Use
  Company Number: None

PATIENT
  Age: 61 Year
  Sex: Male
  Weight: 122 kg

DRUGS (1)
  1. REMDESIVIR. [Suspect]
     Active Substance: REMDESIVIR
     Indication: COVID-19
     Dates: start: 20200630, end: 20200704

REACTIONS (5)
  - Renal replacement therapy [None]
  - Renal failure [None]
  - Cardio-respiratory arrest [None]
  - Hypotension [None]
  - General physical health deterioration [None]

NARRATIVE: CASE EVENT DATE: 20200713
